FAERS Safety Report 4780048-8 (Version None)
Quarter: 2005Q3

REPORT INFORMATION
  Report Type: 
  Country: None (occurrence: None)
  Receive Date: 20050927
  Receipt Date: 20050920
  Transmission Date: 20060218
  Serious: Yes (Other)
  Sender: FDA-Public Use
  Company Number: PHNU2005DE03238

PATIENT
  Sex: Female

DRUGS (3)
  1. FEMOSTON [Concomitant]
  2. SANDIMMUNE [Suspect]
     Indication: LICHEN PLANUS
     Dosage: 150 MG, BID
     Route: 048
     Dates: start: 20050601, end: 20050824
  3. MOBIC [Concomitant]
     Dosage: 7.5 MG DAILY

REACTIONS (5)
  - BLOOD PRESSURE INCREASED [None]
  - HAIR GROWTH ABNORMAL [None]
  - HYPOACUSIS [None]
  - PARAESTHESIA [None]
  - VISUAL ACUITY REDUCED [None]
